FAERS Safety Report 23265249 (Version 1)
Quarter: 2023Q4

REPORT INFORMATION
  Report Type: Spontaneous
  Country: GB (occurrence: GB)
  Receive Date: 20231206
  Receipt Date: 20231206
  Transmission Date: 20240110
  Serious: Yes (Hospitalization)
  Sender: FDA-Public Use
  Company Number: None

PATIENT

DRUGS (10)
  1. RIVAROXABAN [Suspect]
     Active Substance: RIVAROXABAN
     Indication: Product used for unknown indication
     Route: 048
  2. ATORVASTATIN [Concomitant]
     Active Substance: ATORVASTATIN
  3. BISOPROLOL [Concomitant]
     Active Substance: BISOPROLOL\BISOPROLOL FUMARATE
  4. DONEPEZIL [Concomitant]
     Active Substance: DONEPEZIL
  5. LANSOPRAZOLE [Concomitant]
     Active Substance: LANSOPRAZOLE
  6. LEVOTHYROXINE [Concomitant]
     Active Substance: LEVOTHYROXINE
  7. MIRTAZAPINE [Concomitant]
     Active Substance: MIRTAZAPINE
  8. RAMIPRIL [Concomitant]
     Active Substance: RAMIPRIL
  9. SERTRALINE [Concomitant]
     Active Substance: SERTRALINE HYDROCHLORIDE
  10. VITAMIN D NOS [Concomitant]
     Active Substance: VITAMIN D NOS

REACTIONS (1)
  - Cerebrovascular accident [Recovering/Resolving]
